FAERS Safety Report 6409083-0 (Version None)
Quarter: 2009Q4

REPORT INFORMATION
  Report Type: 
  Country: None (occurrence: None)
  Receive Date: 20091019
  Receipt Date: 20091019
  Transmission Date: 20100525
  Serious: Yes (Other)
  Sender: FDA-Public Use
  Company Number: None

PATIENT
  Age: 45 Year
  Sex: Male
  Weight: 65.7716 kg

DRUGS (1)
  1. BENZONATATE [Suspect]
     Indication: COUGH
     Dosage: 1 TO 3 CAPS 3 TIMES DAILY PO
     Route: 048
     Dates: start: 20091013, end: 20091017

REACTIONS (4)
  - ARTHRALGIA [None]
  - DRUG INTERACTION [None]
  - FEELING ABNORMAL [None]
  - MYALGIA [None]
